FAERS Safety Report 22361482 (Version 1)
Quarter: 2023Q2

REPORT INFORMATION
  Report Type: Spontaneous
  Country: US (occurrence: None)
  Receive Date: 20230523
  Receipt Date: 20230523
  Transmission Date: 20230721
  Serious: Yes (Hospitalization)
  Sender: FDA-Public Use
  Company Number: None

PATIENT
  Sex: Female

DRUGS (1)
  1. XELJANZ [Suspect]
     Active Substance: TOFACITINIB CITRATE
     Indication: Proctitis ulcerative
     Dosage: 10MG TWICE DAILY ORAL
     Route: 048
     Dates: start: 20180109

REACTIONS (1)
  - Pneumonia [None]
